FAERS Safety Report 9964320 (Version 1)
Quarter: 2014Q1

REPORT INFORMATION
  Report Type: Spontaneous
  Country: BR (occurrence: BR)
  Receive Date: 20140305
  Receipt Date: 20140305
  Transmission Date: 20141002
  Serious: Yes (Other)
  Sender: FDA-Public Use
  Company Number: BR-GLAXOSMITHKLINE-A1063199A

PATIENT
  Age: 84 Year
  Sex: Female
  Weight: 46 kg

DRUGS (1)
  1. SERETIDE [Suspect]
     Indication: DYSPNOEA
     Route: 065
     Dates: start: 201108, end: 201108

REACTIONS (3)
  - Cardiac arrest [Recovered/Resolved]
  - Cardiac pacemaker insertion [Recovered/Resolved]
  - Syncope [Recovered/Resolved]
